FAERS Safety Report 22155267 (Version 1)
Quarter: 2023Q1

REPORT INFORMATION
  Report Type: Spontaneous
  Country: JP (occurrence: None)
  Receive Date: 20230330
  Receipt Date: 20230330
  Transmission Date: 20230418
  Serious: Yes (Death, Other)
  Sender: FDA-Public Use
  Company Number: 2023A068397

PATIENT
  Age: 89 Year
  Sex: Female

DRUGS (1)
  1. ONDEXXYA [Suspect]
     Active Substance: ANDEXANET ALFA
     Indication: Thalamus haemorrhage
     Dosage: 400 MG INTRAVENOUSLY AT A RATE OF 30 MG/MIN FOLLOWED BY 480 MG INTRAVENOUSLY AT A RATE OF 4 MG/MI...
     Route: 042

REACTIONS (1)
  - Cerebellar embolism [Fatal]
